FAERS Safety Report 10024774 (Version 1)
Quarter: 2014Q1

REPORT INFORMATION
  Report Type: Spontaneous
  Country: US (occurrence: None)
  Receive Date: 20140318
  Receipt Date: 20140318
  Transmission Date: 20141002
  Serious: Yes (Disabling, Other)
  Sender: FDA-Public Use
  Company Number: 2014P1002007

PATIENT
  Age: 84 Year
  Sex: Female

DRUGS (3)
  1. ZOLEDRONIC ACID INJECTION [Suspect]
     Indication: OSTEOPOROSIS
     Dosage: X1
     Route: 042
  2. ACETAMINOPHEN [Concomitant]
  3. DIPHENHYDRAMINE [Concomitant]

REACTIONS (3)
  - Temporal arteritis [None]
  - Optic ischaemic neuropathy [None]
  - Blindness [None]
